FAERS Safety Report 7058906-3 (Version None)
Quarter: 2010Q4

REPORT INFORMATION
  Report Type: 
  Country: None (occurrence: None)
  Receive Date: 20101022
  Receipt Date: 20101019
  Transmission Date: 20110411
  Serious: Yes (Hospitalization, Other)
  Sender: FDA-Public Use
  Company Number: GB-AMGEN INC.-QUU442471

PATIENT

DRUGS (5)
  1. NPLATE [Suspect]
     Indication: IDIOPATHIC THROMBOCYTOPENIC PURPURA
     Dosage: 1 A?G/KG, QWK
     Route: 058
     Dates: start: 20100201, end: 20100901
  2. CORTICOSTEROIDS [Concomitant]
  3. MYCOPHENOLATE MOFETIL [Concomitant]
     Dosage: UNK UNK, QWK
     Route: 058
     Dates: start: 20100201, end: 20100901
  4. FOLIC ACID [Concomitant]
     Dosage: 5 MG, QD
     Route: 048
  5. ACICLOVIR [Concomitant]
     Dosage: 60 MG, UNK
     Route: 048

REACTIONS (2)
  - PLATELET COUNT DECREASED [None]
  - VIRAL INFECTION [None]
